FAERS Safety Report 21191317 (Version 1)
Quarter: 2022Q3

REPORT INFORMATION
  Report Type: Spontaneous
  Country: GB (occurrence: GB)
  Receive Date: 20220809
  Receipt Date: 20220809
  Transmission Date: 20221027
  Serious: Yes (Life-Threatening, Other)
  Sender: FDA-Public Use
  Company Number: GB-MHRA-MED-202207261506342870-PDKTN

PATIENT
  Age: 66 Year
  Sex: Male
  Weight: 83 kg

DRUGS (3)
  1. FINASTERIDE [Suspect]
     Active Substance: FINASTERIDE
     Indication: Prostatomegaly
     Dosage: 5 MILLIGRAM DAILY;
     Dates: start: 20180426, end: 20220724
  2. TAMSULOSIN [Concomitant]
     Active Substance: TAMSULOSIN
     Indication: Prostatomegaly
     Dates: start: 20180426
  3. TROSPIUM CHLORIDE [Concomitant]
     Active Substance: TROSPIUM CHLORIDE
     Indication: Hypertonic bladder
     Dates: start: 20220506

REACTIONS (11)
  - Depression [Unknown]
  - Suicidal ideation [Unknown]
  - Lethargy [Unknown]
  - Decreased interest [Unknown]
  - Feeling abnormal [Unknown]
  - Vision blurred [Unknown]
  - Amnesia [Unknown]
  - Mental impairment [Unknown]
  - Erectile dysfunction [Unknown]
  - Penile size reduced [Unknown]
  - Ejaculation delayed [Unknown]
